FAERS Safety Report 5723728-X (Version None)
Quarter: 2008Q2

REPORT INFORMATION
  Report Type: 
  Country: None (occurrence: None)
  Receive Date: 20080429
  Receipt Date: 20080429
  Transmission Date: 20081010
  Serious: Yes (Hospitalization)
  Sender: FDA-Public Use
  Company Number: None

PATIENT
  Age: 77 Year
  Sex: Male
  Weight: 63 kg

DRUGS (1)
  1. FOSINOPRIL SODIUM [Suspect]
     Indication: HYPERTENSION
     Dosage: 30 MG EVERY DAY PO
     Route: 048
     Dates: start: 19950123, end: 20071121

REACTIONS (5)
  - DIARRHOEA [None]
  - EOSINOPHILIA [None]
  - HYPOTENSION [None]
  - NAUSEA [None]
  - RENAL IMPAIRMENT [None]
